FAERS Safety Report 8370110-5 (Version None)
Quarter: 2012Q2

REPORT INFORMATION
  Report Type: 
  Country: None (occurrence: None)
  Receive Date: 20120518
  Receipt Date: 20120510
  Transmission Date: 20120825
  Serious: Yes (Hospitalization, Other)
  Sender: FDA-Public Use
  Company Number: NZ-B.I. PHARMACEUTICALS,INC./RIDGEFIELD-2012-AU-00802AU

PATIENT
  Sex: Male
  Weight: 73 kg

DRUGS (16)
  1. SPIRONOLACTONE [Concomitant]
     Dosage: 25 MG
  2. PRADAXA [Suspect]
     Indication: ATRIAL FIBRILLATION
     Dosage: 220 MG
     Dates: start: 20110718, end: 20110728
  3. ACARBOSE [Concomitant]
     Dosage: 150 MG
     Route: 048
  4. PRILOSEC [Concomitant]
     Dosage: 20 MG
  5. MUCLIAX SUGAR FREE [Concomitant]
     Dosage: 5 ML
  6. CARVEDILOL [Concomitant]
     Dosage: 6.25 MG
     Route: 048
  7. SIMVASTATIN [Concomitant]
     Dosage: 10 MG
  8. FUROSEMIDE [Concomitant]
     Dosage: 160 MG
  9. EMULSIFYING OINTMENT [Concomitant]
  10. TERAZOSIN HCL [Concomitant]
     Dosage: 2 MG
  11. PROTAPHANE [Concomitant]
     Dosage: 100I U/1ML; 20 UNITS MANE AND 2 UNITS NOCTE
     Route: 058
  12. LATANOPROST [Concomitant]
     Dosage: 50MG/1ML
  13. LAXSOL [Concomitant]
  14. DURIDE [Concomitant]
     Dosage: 120 MG
  15. ACCUPRIL [Concomitant]
     Dosage: 5 MG
  16. LACTULOSE [Concomitant]
     Dosage: 20 ML
     Route: 048

REACTIONS (2)
  - MELAENA [None]
  - RECTAL CANCER [None]
